FAERS Safety Report 17431046 (Version 2)
Quarter: 2020Q1

REPORT INFORMATION
  Report Type: Spontaneous
  Country: IT (occurrence: IT)
  Receive Date: 20200218
  Receipt Date: 20200225
  Transmission Date: 20200409
  Serious: Yes (Hospitalization, Other)
  Sender: FDA-Public Use
  Company Number: IT-PFIZER INC-2020063995

PATIENT
  Age: 59 Year
  Sex: Male

DRUGS (2)
  1. AMPHOTERICIN B, LIPOSOME [Suspect]
     Active Substance: AMPHOTERICIN B
     Indication: MUCOCUTANEOUS LEISHMANIASIS
     Dosage: 4MG/KG/DAY,DAY1-5, 10, 17, 24, 31, 38
  2. METHYLPREDNISOLONE. [Suspect]
     Active Substance: METHYLPREDNISOLONE
     Indication: MUCOCUTANEOUS LEISHMANIASIS
     Dosage: 20 MILLIGRAM, DAILY
     Route: 042

REACTIONS (1)
  - Anaphylactic shock [Unknown]
